FAERS Safety Report 7105912-6 (Version None)
Quarter: 2010Q4

REPORT INFORMATION
  Report Type: 
  Country: None (occurrence: None)
  Receive Date: 20101116
  Receipt Date: 20101110
  Transmission Date: 20110411
  Serious: Yes (Life-Threatening)
  Sender: FDA-Public Use
  Company Number: B0676846A

PATIENT
  Sex: Male

DRUGS (2)
  1. AUGMENTIN [Suspect]
     Route: 065
     Dates: start: 20100903, end: 20100911
  2. MABTHERA [Suspect]
     Indication: NON-HODGKIN'S LYMPHOMA
     Route: 042
     Dates: start: 20100518, end: 20100816

REACTIONS (2)
  - AGRANULOCYTOSIS [None]
  - MYELODYSPLASTIC SYNDROME [None]
